FAERS Safety Report 4283808-5 (Version None)
Quarter: 2004Q1

REPORT INFORMATION
  Report Type: 
  Country: None (occurrence: None)
  Receive Date: 20040130
  Receipt Date: 20040116
  Transmission Date: 20041129
  Serious: Yes (Other)
  Sender: FDA-Public Use
  Company Number: US-JNJFOC-20040103277

PATIENT
  Age: 74 Year
  Sex: Female

DRUGS (9)
  1. INFLIXIMAB (INFLIXIMAB, RECOMBINANT) LYOPHILIZED POWDER [Suspect]
     Indication: RHEUMATOID ARTHRITIS
     Dosage: INTRAVENOUS
     Route: 042
     Dates: start: 20000306, end: 20020201
  2. VIOXX [Concomitant]
  3. PREDNISONE [Concomitant]
  4. METHOTREXATE [Concomitant]
  5. CITRACAL + D (CITRACAL + D) [Concomitant]
  6. PREMARIN [Concomitant]
  7. LEVOXYL [Concomitant]
  8. FOLIC ACID [Concomitant]
  9. VITAMIN E [Concomitant]

REACTIONS (1)
  - BASAL CELL CARCINOMA [None]
